FAERS Safety Report 18437459 (Version 4)
Quarter: 2020Q4

REPORT INFORMATION
  Report Type: Report from Study
  Country: US (occurrence: US)
  Receive Date: 20201028
  Receipt Date: 20201216
  Transmission Date: 20210114
  Serious: Yes (Other)
  Sender: FDA-Public Use
  Company Number: NVSC2020US286136

PATIENT
  Age: 70 Year
  Sex: Male

DRUGS (2)
  1. ENTRESTO [Suspect]
     Active Substance: SACUBITRIL\VALSARTAN
     Dosage: UNK
     Route: 065
  2. ENTRESTO [Suspect]
     Active Substance: SACUBITRIL\VALSARTAN
     Indication: PRODUCT USED FOR UNKNOWN INDICATION
     Dosage: UNK UNK, BID
     Route: 048
     Dates: start: 20201017

REACTIONS (6)
  - Pericardial effusion [Recovered/Resolved]
  - Visual impairment [Recovered/Resolved]
  - Inappropriate schedule of product administration [Unknown]
  - Pulmonary oedema [Recovered/Resolved]
  - Intra-abdominal fluid collection [Recovered/Resolved]
  - Feeling abnormal [Unknown]
